FAERS Safety Report 12791518 (Version 1)
Quarter: 2016Q3

REPORT INFORMATION
  Report Type: Spontaneous
  Country: IN (occurrence: IN)
  Receive Date: 20160929
  Receipt Date: 20160929
  Transmission Date: 20161109
  Serious: Yes (Death)
  Sender: FDA-Public Use
  Company Number: IN-ASTRAZENECA-2016SF02164

PATIENT
  Age: 73 Year
  Sex: Female

DRUGS (7)
  1. BRILINTA [Suspect]
     Active Substance: TICAGRELOR
     Indication: ARRHYTHMIA
     Dosage: 180MG LOADING, 90MG BD
     Route: 048
     Dates: start: 20160917, end: 20160919
  2. BRILINTA [Suspect]
     Active Substance: TICAGRELOR
     Indication: TROPONIN
     Dosage: 180MG LOADING, 90MG BD
     Route: 048
     Dates: start: 20160917, end: 20160919
  3. STATINS [Concomitant]
     Active Substance: UNSPECIFIED INGREDIENT
     Indication: ACUTE CORONARY SYNDROME
     Route: 048
  4. ASPIRIN. [Concomitant]
     Active Substance: ASPIRIN
     Indication: ACUTE CORONARY SYNDROME
     Route: 048
  5. BRILINTA [Suspect]
     Active Substance: TICAGRELOR
     Indication: ACUTE CORONARY SYNDROME
     Dosage: 180MG LOADING, 90MG BD
     Route: 048
     Dates: start: 20160917, end: 20160919
  6. BRILINTA [Suspect]
     Active Substance: TICAGRELOR
     Indication: ANGINA UNSTABLE
     Dosage: 180MG LOADING, 90MG BD
     Route: 048
     Dates: start: 20160917, end: 20160919
  7. BEA-BLOCKERS [Concomitant]
     Indication: ACUTE CORONARY SYNDROME
     Route: 048

REACTIONS (2)
  - Haemorrhage [Fatal]
  - Skin discolouration [Fatal]

NARRATIVE: CASE EVENT DATE: 20160919
